FAERS Safety Report 8058614-6 (Version None)
Quarter: 2012Q1

REPORT INFORMATION
  Report Type: 
  Country: None (occurrence: None)
  Receive Date: 20120120
  Receipt Date: 20120111
  Transmission Date: 20120608
  Serious: Yes (Hospitalization, Other)
  Sender: FDA-Public Use
  Company Number: AU-BRISTOL-MYERS SQUIBB COMPANY-15839517

PATIENT
  Age: 67 Year
  Sex: Male

DRUGS (6)
  1. ENTECAVIR [Suspect]
     Indication: HEPATITIS B
     Dates: start: 20100701
  2. PERINDOPRIL ERBUMINE [Concomitant]
     Indication: CARDIOVASCULAR DISORDER
     Route: 048
  3. ABACAVIR SULFATE AND LAMIVUDINE [Suspect]
     Indication: HIV INFECTION
     Dosage: 1 TABS
     Route: 048
     Dates: start: 20100701
  4. ATAZANAVIR [Suspect]
     Indication: HIV INFECTION
     Route: 048
     Dates: start: 20050601
  5. ATORVASTATIN [Concomitant]
     Indication: CARDIOVASCULAR DISORDER
  6. ATENOLOL [Concomitant]
     Indication: CARDIOVASCULAR DISORDER
     Route: 048
     Dates: start: 20050601

REACTIONS (6)
  - RENAL IMPAIRMENT [None]
  - ATAXIA [None]
  - PNEUMONIA [None]
  - CEREBELLAR SYNDROME [None]
  - MEMORY IMPAIRMENT [None]
  - PARKINSON'S DISEASE [None]
